FAERS Safety Report 6135951-3 (Version None)
Quarter: 2009Q1

REPORT INFORMATION
  Report Type: 
  Country: None (occurrence: None)
  Receive Date: 20090329
  Receipt Date: 20081229
  Transmission Date: 20090719
  Serious: No
  Sender: FDA-Public Use
  Company Number: US-BAUSCH-2008BL005390

PATIENT
  Age: 76 Year
  Sex: Female
  Weight: 52 kg

DRUGS (7)
  1. ALAWAY [Suspect]
     Indication: EYE PRURITUS
     Route: 047
     Dates: start: 20081215
  2. METOPROLOL TARTRATE [Concomitant]
     Indication: CARDIAC DISORDER
     Route: 048
     Dates: start: 20060101
  3. FOLIC ACID [Concomitant]
     Route: 048
     Dates: start: 20030101
  4. OCUVITE WITH LUTEIN [Concomitant]
     Indication: VITAMIN SUPPLEMENTATION
     Route: 048
     Dates: start: 20081101
  5. COENZYME Q10 [Concomitant]
     Route: 048
     Dates: start: 20080901
  6. ALLERSTOP [Concomitant]
     Indication: SEASONAL ALLERGY
     Route: 048
     Dates: start: 20080901
  7. BIOPURE PROTEIN [Concomitant]

REACTIONS (2)
  - EYE IRRITATION [None]
  - OCULAR HYPERAEMIA [None]
